FAERS Safety Report 14920735 (Version 2)
Quarter: 2018Q3

REPORT INFORMATION
  Report Type: Report from Study
  Country: JP (occurrence: JP)
  Receive Date: 20180521
  Receipt Date: 20180713
  Transmission Date: 20181010
  Serious: Yes (Other)
  Sender: FDA-Public Use
  Company Number: PHJP2017JP025134

PATIENT
  Age: 49 Year
  Sex: Female

DRUGS (8)
  1. SIGNIFOR LAR [Suspect]
     Active Substance: PASIREOTIDE
     Dosage: 60 MG, 4W
     Route: 030
     Dates: start: 20170927, end: 20180314
  2. CABASER [Concomitant]
     Active Substance: CABERGOLINE
     Dosage: 0.5 MG, UNK
     Route: 048
     Dates: start: 20170928, end: 20171025
  3. CABASER [Concomitant]
     Active Substance: CABERGOLINE
     Dosage: 1.75 MG, UNK
     Route: 048
     Dates: start: 20171026, end: 20171129
  4. CABASER [Concomitant]
     Active Substance: CABERGOLINE
     Dosage: 1 MG, UNK
     Route: 048
     Dates: start: 20171130, end: 20180411
  5. CABASER [Concomitant]
     Active Substance: CABERGOLINE
     Indication: ACROMEGALY
     Dosage: 0.25 MG, UNK
     Route: 048
     Dates: end: 20170927
  6. SIGNIFOR LAR [Suspect]
     Active Substance: PASIREOTIDE
     Indication: ACROMEGALY
     Dosage: 40 MG, 4W
     Route: 030
     Dates: start: 20170705, end: 20170831
  7. SOMAVERT [Concomitant]
     Active Substance: PEGVISOMANT
     Indication: ACROMEGALY
     Route: 065
  8. SIGNIFOR LAR [Suspect]
     Active Substance: PASIREOTIDE
     Dosage: 60 MG, 4W
     Route: 030
     Dates: start: 20180530

REACTIONS (4)
  - Diabetes mellitus [Unknown]
  - Glycosylated haemoglobin increased [Recovering/Resolving]
  - Blood glucose increased [Not Recovered/Not Resolved]
  - Pituitary tumour benign [Not Recovered/Not Resolved]

NARRATIVE: CASE EVENT DATE: 20171129
